FAERS Safety Report 10492981 (Version 1)
Quarter: 2014Q4

REPORT INFORMATION
  Report Type: Spontaneous
  Country: US (occurrence: US)
  Receive Date: 20141002
  Receipt Date: 20141002
  Transmission Date: 20150528
  Serious: No
  Sender: FDA-Public Use
  Company Number: US-GLAXOSMITHKLINE-A1077716A

PATIENT
  Age: 42 Year
  Sex: Female

DRUGS (4)
  1. DAILY VITAMIN [Concomitant]
     Active Substance: VITAMINS
  2. ADVAIR HFA [Suspect]
     Active Substance: FLUTICASONE PROPIONATE\SALMETEROL XINAFOATE
     Indication: ASTHMA
     Dosage: 2PUFF IN THE MORNING
     Route: 055
     Dates: start: 2012, end: 2014
  3. OXYCODONE [Concomitant]
     Active Substance: OXYCODONE
  4. IMMUNOGLOBULIN G [Concomitant]
     Active Substance: HUMAN IMMUNOGLOBULIN G

REACTIONS (3)
  - Oropharyngeal candidiasis [Unknown]
  - Oral candidiasis [Recovered/Resolved]
  - Candida infection [Unknown]

NARRATIVE: CASE EVENT DATE: 2012
